FAERS Safety Report 7141585-4 (Version None)
Quarter: 2010Q4

REPORT INFORMATION
  Report Type: 
  Country: None (occurrence: None)
  Receive Date: 20101207
  Receipt Date: 20101124
  Transmission Date: 20110411
  Serious: Yes (Hospitalization, Other)
  Sender: FDA-Public Use
  Company Number: BR-ELI_LILLY_AND_COMPANY-BR201011002163

PATIENT
  Sex: Female
  Weight: 70 kg

DRUGS (8)
  1. CYMBALTA [Suspect]
     Indication: BONE PAIN
     Dosage: 60 MG, DAILY (1/D)
     Route: 065
  2. FRONTAL [Concomitant]
     Indication: SLEEP DISORDER
     Dosage: UNK, EACH EVENING
     Route: 065
  3. TRAZODONE HYDROCHLORIDE [Concomitant]
     Dosage: UNK, EACH EVENING
     Route: 048
  4. COZAAR [Concomitant]
     Indication: HYPERTENSION
     Dosage: 50 MG, 2/D
     Route: 065
  5. SIMVASTATIN [Concomitant]
     Indication: BLOOD CHOLESTEROL
     Dosage: 10 MG, EACH EVENING
     Route: 065
  6. TYLEX [Concomitant]
     Indication: PAIN
     Dosage: 30 MG, 2/D
     Route: 048
  7. MIOSAN [Concomitant]
     Indication: MUSCLE DISORDER
     Dosage: 5 MG, 2/D
     Route: 048
     Dates: start: 20090101
  8. ALENDRONATE SODIUM [Concomitant]
     Indication: OSTEOPENIA
     Dosage: 70 MG, WEEKLY (1/W)
     Route: 065

REACTIONS (12)
  - HIP FRACTURE [None]
  - HYPERTENSION [None]
  - INSOMNIA [None]
  - LUMBAR SPINE FLATTENING [None]
  - MEDICAL DEVICE CHANGE [None]
  - MEDICAL DEVICE IMPLANTATION [None]
  - MUSCLE CONTRACTURE [None]
  - MYALGIA [None]
  - OFF LABEL USE [None]
  - OSTEOPOROSIS [None]
  - SPINAL COLUMN INJURY [None]
  - STRESS [None]
